FAERS Safety Report 25005533 (Version 1)
Quarter: 2025Q1

REPORT INFORMATION
  Report Type: Report from Study
  Country: US (occurrence: US)
  Receive Date: 20250224
  Receipt Date: 20250224
  Transmission Date: 20250409
  Serious: Yes (Other)
  Sender: MYLAN
  Company Number: US-MYLANLABS-2025M1011163

PATIENT
  Age: 50 Year
  Sex: Female
  Weight: 75.74 kg

DRUGS (8)
  1. GLATIRAMER ACETATE [Suspect]
     Active Substance: GLATIRAMER ACETATE
     Indication: Multiple sclerosis
     Dosage: 40 MILLIGRAM, 3XW (THREE TIMES PER WEEK)
     Dates: start: 20250131
  2. GLATIRAMER ACETATE [Suspect]
     Active Substance: GLATIRAMER ACETATE
     Dosage: 40 MILLIGRAM, 3XW (THREE TIMES PER WEEK)
     Route: 058
     Dates: start: 20250131
  3. GLATIRAMER ACETATE [Suspect]
     Active Substance: GLATIRAMER ACETATE
     Dosage: 40 MILLIGRAM, 3XW (THREE TIMES PER WEEK)
     Route: 058
     Dates: start: 20250131
  4. GLATIRAMER ACETATE [Suspect]
     Active Substance: GLATIRAMER ACETATE
     Dosage: 40 MILLIGRAM, 3XW (THREE TIMES PER WEEK)
     Dates: start: 20250131
  5. DEVICE [Suspect]
     Active Substance: DEVICE
     Indication: Multiple sclerosis
  6. DEVICE [Suspect]
     Active Substance: DEVICE
     Route: 065
  7. DEVICE [Suspect]
     Active Substance: DEVICE
     Route: 065
  8. DEVICE [Suspect]
     Active Substance: DEVICE

REACTIONS (4)
  - Skin cancer [Unknown]
  - Flushing [Unknown]
  - Injection site discharge [Unknown]
  - Wrong technique in device usage process [Unknown]

NARRATIVE: CASE EVENT DATE: 20250205
